FAERS Safety Report 7860992-5 (Version None)
Quarter: 2011Q4

REPORT INFORMATION
  Report Type: 
  Country: None (occurrence: None)
  Receive Date: 20111027
  Receipt Date: 20111019
  Transmission Date: 20120403
  Serious: Yes (Death)
  Sender: FDA-Public Use
  Company Number: US-GLAXOSMITHKLINE-A0949914A

PATIENT
  Age: 76 Year
  Sex: Male

DRUGS (10)
  1. PROMACTA [Suspect]
     Indication: IDIOPATHIC THROMBOCYTOPENIC PURPURA
     Dosage: 50MG PER DAY
     Route: 048
     Dates: start: 20110510, end: 20110514
  2. ZANTAC [Concomitant]
  3. PRAVASTATIN [Concomitant]
  4. METOPROLOL TARTRATE [Concomitant]
  5. IMMUNE GLOBULIN INTRAVENOUS (HUMAN) [Concomitant]
  6. EXJADE [Concomitant]
  7. VIDAZA [Concomitant]
  8. AMICAR [Concomitant]
  9. NITROGLYCERIN [Concomitant]
  10. NIASPAN [Concomitant]

REACTIONS (3)
  - HAEMORRHAGE [None]
  - IDIOPATHIC THROMBOCYTOPENIC PURPURA [None]
  - MYELODYSPLASTIC SYNDROME [None]
